FAERS Safety Report 6875295-5 (Version None)
Quarter: 2010Q2

REPORT INFORMATION
  Report Type: 
  Country: None (occurrence: None)
  Receive Date: 20100616
  Receipt Date: 20080130
  Transmission Date: 20101027
  Serious: Yes (Other)
  Sender: FDA-Public Use
  Company Number: S08-USA-00350-01

PATIENT

DRUGS (1)
  1. NAMENDA [Suspect]
     Dosage: ORAL
     Route: 048

REACTIONS (1)
  - CONVULSION [None]
